FAERS Safety Report 10873590 (Version 1)
Quarter: 2015Q1

REPORT INFORMATION
  Report Type: Spontaneous
  Country: US (occurrence: None)
  Receive Date: 20150223
  Receipt Date: 20150223
  Transmission Date: 20150721
  Serious: Yes (Hospitalization)
  Sender: FDA-Public Use
  Company Number: None

PATIENT
  Age: 73 Year
  Sex: Female
  Weight: 53 kg

DRUGS (12)
  1. CALCIUM CARBONATE-VITAMIN D3 [Concomitant]
  2. PROMETHAZINE [Concomitant]
     Active Substance: PROMETHAZINE\PROMETHAZINE HYDROCHLORIDE
  3. ODANSETRON [Concomitant]
     Active Substance: ONDANSETRON
  4. CHOLECALCIFEROL [Concomitant]
     Active Substance: CHOLECALCIFEROL
  5. ACYCLOVIR. [Concomitant]
     Active Substance: ACYCLOVIR
  6. SIROLIMUS 2 MG [Suspect]
     Active Substance: SIROLIMUS
     Indication: PLASMA CELL MYELOMA
     Dosage: 12 MG DAY -2, 4MG DAY -1TO4, QD, ORAL?
     Route: 048
     Dates: start: 20150121, end: 20150126
  7. HYDROXYCHLOROQUINE 200 MG [Suspect]
     Active Substance: HYDROXYCHLOROQUINE
     Indication: PLASMA CELL MYELOMA
     Route: 048
     Dates: start: 20150127, end: 20150212
  8. POLYETHYLENE GLYCOL [Concomitant]
     Active Substance: POLYETHYLENE GLYCOLS
  9. FLUCONAZOLE. [Concomitant]
     Active Substance: FLUCONAZOLE
  10. SENNA-DOCUSATE [Concomitant]
  11. OMEPRAZOLE. [Concomitant]
     Active Substance: OMEPRAZOLE
  12. LORAZEPAM. [Concomitant]
     Active Substance: LORAZEPAM

REACTIONS (3)
  - Chronic kidney disease [None]
  - Somnolence [None]
  - Condition aggravated [None]

NARRATIVE: CASE EVENT DATE: 20150212
